FAERS Safety Report 7084646-0 (Version None)
Quarter: 2010Q4

REPORT INFORMATION
  Report Type: 
  Country: None (occurrence: None)
  Receive Date: 20101104
  Receipt Date: 20101101
  Transmission Date: 20110411
  Serious: Yes (Death)
  Sender: FDA-Public Use
  Company Number: PHHY2010PK73895

PATIENT
  Sex: Female
  Weight: 60 kg

DRUGS (2)
  1. RASILEZ [Suspect]
     Dosage: 150 MG
     Route: 048
     Dates: start: 20100117
  2. CARDACE [Concomitant]
     Dosage: 5 MG

REACTIONS (2)
  - COUGH [None]
  - DEATH [None]
